FAERS Safety Report 8393984-0 (Version None)
Quarter: 2012Q2

REPORT INFORMATION
  Report Type: 
  Country: None (occurrence: None)
  Receive Date: 20120517
  Receipt Date: 20120514
  Transmission Date: 20120825
  Serious: Yes (Other)
  Sender: FDA-Public Use
  Company Number: 2010SP020394

PATIENT
  Sex: Female

DRUGS (4)
  1. AVELOX [Suspect]
     Indication: SINUSITIS
     Dosage: 400 MG; ;PO
     Route: 048
  2. SALINE [Concomitant]
  3. BIAXIN XL [Concomitant]
  4. NASONEX [Suspect]
     Indication: PRODUCT USED FOR UNKNOWN INDICATION

REACTIONS (4)
  - RASH [None]
  - SERUM SICKNESS [None]
  - PYREXIA [None]
  - PAIN [None]
